FAERS Safety Report 26108566 (Version 2)
Quarter: 2025Q4

REPORT INFORMATION
  Report Type: Spontaneous
  Country: EU (occurrence: EU)
  Receive Date: 20251201
  Receipt Date: 20251216
  Transmission Date: 20260118
  Serious: Yes (Disabling)
  Sender: ABBVIE
  Company Number: EU-002147023-NVSC2025SE178985

PATIENT
  Sex: Male

DRUGS (10)
  1. ADALIMUMAB [Suspect]
     Active Substance: ADALIMUMAB
     Indication: Hidradenitis
     Route: 058
     Dates: start: 2024, end: 202503
  2. AZELAIC ACID [Concomitant]
     Active Substance: AZELAIC ACID
     Indication: Product used for unknown indication
  3. COSENTYX [Suspect]
     Active Substance: SECUKINUMAB
     Indication: Hidradenitis
     Route: 065
     Dates: start: 202503
  4. COSENTYX [Suspect]
     Active Substance: SECUKINUMAB
     Indication: Hidradenitis
     Dosage: UNK, Q4W
     Route: 065
  5. ISOTRETINOIN [Concomitant]
     Active Substance: ISOTRETINOIN
     Indication: Product used for unknown indication
     Dosage: 40 MG, QD
     Dates: start: 202503
  6. BASIRON [Concomitant]
     Indication: Product used for unknown indication
     Dates: start: 202503
  7. LYMECYCLINE [Concomitant]
     Active Substance: LYMECYCLINE
     Indication: Product used for unknown indication
     Dates: start: 2024
  8. PREDNISOLONE [Concomitant]
     Active Substance: PREDNISOLONE
     Indication: Symptomatic treatment
     Dosage: 40 MG
     Dates: start: 2024
  9. PREDNISOLONE [Concomitant]
     Active Substance: PREDNISOLONE
     Indication: Symptomatic treatment
     Dosage: 30 MG, QD
  10. PREDNISOLONE [Concomitant]
     Active Substance: PREDNISOLONE
     Indication: Symptomatic treatment
     Dosage: 20 MG, QD

REACTIONS (7)
  - General physical health deterioration [Unknown]
  - Drug ineffective [Unknown]
  - Swelling face [Not Recovered/Not Resolved]
  - Hidradenitis [Not Recovered/Not Resolved]
  - Inflammation [Unknown]
  - Infection [Unknown]
  - Inappropriate schedule of product administration [Unknown]

NARRATIVE: CASE EVENT DATE: 20250301
